FAERS Safety Report 14838886 (Version 1)
Quarter: 2018Q2

REPORT INFORMATION
  Report Type: Report from Study
  Country: CA (occurrence: CA)
  Receive Date: 20180502
  Receipt Date: 20180502
  Transmission Date: 20180711
  Serious: Yes (Death, Other)
  Sender: FDA-Public Use
  Company Number: PHHY2017CA134059

PATIENT
  Age: 57 Year
  Sex: Female

DRUGS (2)
  1. SANDOSTATIN [Suspect]
     Active Substance: OCTREOTIDE ACETATE
     Indication: VIPOMA
     Dosage: UNK UNK, TID
     Route: 058
  2. SANDOSTATIN LAR DEPOT [Suspect]
     Active Substance: OCTREOTIDE ACETATE
     Indication: VIPOMA
     Dosage: 30 MG, QMO
     Route: 030
     Dates: start: 20171107

REACTIONS (12)
  - Erythema [Unknown]
  - Death [Fatal]
  - Diarrhoea [Unknown]
  - Lethargy [Unknown]
  - Peripheral swelling [Unknown]
  - Pallor [Unknown]
  - Asthenia [Unknown]
  - Sepsis [Unknown]
  - Fatigue [Unknown]
  - Oedema peripheral [Unknown]
  - Decreased appetite [Unknown]
  - Abdominal pain [Not Recovered/Not Resolved]

NARRATIVE: CASE EVENT DATE: 2017
